FAERS Safety Report 25771824 (Version 1)
Quarter: 2025Q3

REPORT INFORMATION
  Report Type: Spontaneous
  Country: US (occurrence: US)
  Receive Date: 20250908
  Receipt Date: 20250908
  Transmission Date: 20251021
  Serious: No
  Sender: CIPLA
  Company Number: US-CIPLA LTD.-2025US10945

PATIENT

DRUGS (3)
  1. ALENDRONATE [Suspect]
     Active Substance: ALENDRONATE SODIUM
     Indication: Osteoporosis
     Route: 065
     Dates: start: 202506
  2. OXYPAN [OXYBUTYNIN] [Concomitant]
     Indication: Product used for unknown indication
     Dosage: UNK, QD (ONCE A DAY)
     Route: 065
  3. DANAZOL [Concomitant]
     Active Substance: DANAZOL
     Indication: Bladder disorder
     Route: 065

REACTIONS (1)
  - Crepitations [Unknown]

NARRATIVE: CASE EVENT DATE: 20250101
